FAERS Safety Report 5662001-5 (Version None)
Quarter: 2008Q2

REPORT INFORMATION
  Report Type: 
  Country: None (occurrence: None)
  Receive Date: 20080201
  Receipt Date: 20071010
  Transmission Date: 20081010
  Serious: Yes (Hospitalization)
  Sender: FDA-Public Use
  Company Number: 522478

PATIENT
  Age: 52 Year
  Sex: Male
  Weight: 75.8 kg

DRUGS (4)
  1. COPEGUS [Suspect]
     Indication: HEPATITIS C
     Dosage: 400 MG 2 PER DAY
     Dates: start: 20070905, end: 20070912
  2. REYATAZ [Suspect]
     Indication: HIV INFECTION
     Dosage: 400 MG DAILY
     Dates: start: 20040414, end: 20070912
  3. PEGASYS [Concomitant]
  4. TRIZIVIR [Concomitant]

REACTIONS (3)
  - ANAEMIA [None]
  - BLOOD BILIRUBIN INCREASED [None]
  - JAUNDICE [None]
